FAERS Safety Report 7516245-8 (Version None)
Quarter: 2011Q2

REPORT INFORMATION
  Report Type: 
  Country: None (occurrence: None)
  Receive Date: 20110601
  Receipt Date: 20110523
  Transmission Date: 20111010
  Serious: Yes (Other)
  Sender: FDA-Public Use
  Company Number: BR-NOVOPROD-328815

PATIENT
  Age: 47 Year
  Sex: Male
  Weight: 64 kg

DRUGS (2)
  1. NOVORAPID FLEXPEN [Suspect]
     Indication: TYPE 2 DIABETES MELLITUS
     Dosage: 9 U (5 U MORNING,4 U IN EVENING),QD
     Route: 058
     Dates: start: 20110508
  2. JANUMET [Concomitant]
     Indication: TYPE 2 DIABETES MELLITUS
     Dosage: 100/1700 MG, UNK
     Route: 048
     Dates: start: 20110423

REACTIONS (2)
  - PAIN IN EXTREMITY [None]
  - BACK PAIN [None]
